FAERS Safety Report 8237728-1 (Version None)
Quarter: 2012Q1

REPORT INFORMATION
  Report Type: 
  Country: None (occurrence: None)
  Receive Date: 20120309
  Receipt Date: 20110117
  Transmission Date: 20120608
  Serious: Yes (Other)
  Sender: FDA-Public Use
  Company Number: PHHY2011US04272

PATIENT
  Age: 34 Year
  Sex: Female

DRUGS (2)
  1. EXTAVIA [Suspect]
     Indication: MULTIPLE SCLEROSIS
     Dosage: 0.25 MG (1ML), QOD, SUBCUTANEOUS
     Route: 058
     Dates: start: 20100624
  2. BACTRIM [Concomitant]

REACTIONS (6)
  - URINE ODOUR ABNORMAL [None]
  - URINARY TRACT INFECTION [None]
  - INCONTINENCE [None]
  - URINE COLOUR ABNORMAL [None]
  - FATIGUE [None]
  - ABDOMINAL PAIN UPPER [None]
